FAERS Safety Report 8461638 (Version 2)
Quarter: 2013Q1

REPORT INFORMATION
  Report Type: Spontaneous
  Country: US (occurrence: None)
  Receive Date: 20120308
  Receipt Date: 20121128
  Transmission Date: 20140127
  Serious: Yes (Hospitalization)
  Sender: FDA-Public Use
  Company Number: US-007878

PATIENT
  Age: 35 Year
  Sex: Female
  Weight: 90.72 kg

DRUGS (8)
  1. TRANEXAMIC ACID [Suspect]
     Dosage: (TWO TABLETS THREE TIMES A DAY ORAL)
     Route: 048
     Dates: start: 20120217, end: 20120221
  2. AYGESTIN [Suspect]
     Dates: start: 20120214, end: 20120223
  3. FOLIC ACID [Concomitant]
  4. VITAMIN D [Concomitant]
  5. ZINC SULFATE [Concomitant]
  6. VITAMIN B12 [Concomitant]
  7. COD LIVER OIL [Concomitant]
  8. VITAMIN [Concomitant]

REACTIONS (3)
  - DEEP VEIN THROMBOSIS [None]
  - PULMONARY EMBOLISM [None]
  - ANAEMIA [None]
